FAERS Safety Report 5502493-5 (Version None)
Quarter: 2007Q4

REPORT INFORMATION
  Report Type: 
  Country: None (occurrence: None)
  Receive Date: 20071030
  Receipt Date: 20071018
  Transmission Date: 20080405
  Serious: Yes (Hospitalization, Other)
  Sender: FDA-Public Use
  Company Number: DE-PFIZER INC-2007089023

PATIENT
  Sex: Female

DRUGS (1)
  1. UNACID INJECTION [Suspect]
     Indication: PNEUMONIA MYCOPLASMAL
     Route: 042

REACTIONS (2)
  - ANAPHYLACTIC REACTION [None]
  - PYREXIA [None]
